FAERS Safety Report 5004886-1 (Version None)
Quarter: 2006Q1

REPORT INFORMATION
  Report Type: 
  Country: None (occurrence: None)
  Receive Date: 20060321
  Receipt Date: 20060203
  Transmission Date: 20060701
  Serious: No
  Sender: FDA-Public Use
  Company Number: YPA20060018

PATIENT
  Age: 45 Year
  Sex: Female

DRUGS (1)
  1. VESICARE [Suspect]
     Indication: DRUG DISPENSING ERROR
     Dosage: 75 MG, ORAL
     Route: 048
     Dates: start: 20051211, end: 20051211

REACTIONS (11)
  - BLOOD URINE PRESENT [None]
  - DIZZINESS [None]
  - DRY EYE [None]
  - DYSURIA [None]
  - LOSS OF CONSCIOUSNESS [None]
  - MASTICATION DISORDER [None]
  - OVERDOSE [None]
  - SALIVA ALTERED [None]
  - VISION BLURRED [None]
  - VULVOVAGINAL DRYNESS [None]
  - WRONG DRUG ADMINISTERED [None]
